FAERS Safety Report 6130903-1 (Version None)
Quarter: 2009Q1

REPORT INFORMATION
  Report Type: 
  Country: None (occurrence: None)
  Receive Date: 20090325
  Receipt Date: 20090318
  Transmission Date: 20090719
  Serious: Yes (Hospitalization, Other)
  Sender: FDA-Public Use
  Company Number: US-BAYER-200911939NA

PATIENT
  Age: 65 Year
  Sex: Male
  Weight: 89 kg

DRUGS (6)
  1. NEXAVAR [Suspect]
     Indication: METASTATIC RENAL CELL CARCINOMA
     Dosage: TOTAL DAILY DOSE: 800 MG  UNIT DOSE: 200 MG
     Route: 048
     Dates: start: 20071101, end: 20090101
  2. NEXAVAR [Suspect]
     Dosage: TOTAL DAILY DOSE: 800 MG  UNIT DOSE: 200 MG
     Route: 048
     Dates: start: 20090217
  3. CRESTOR [Concomitant]
  4. LEVOTHYROXINE SODIUM [Concomitant]
  5. METFORMIN [Concomitant]
  6. KEPPRA [Concomitant]

REACTIONS (2)
  - CONFUSIONAL STATE [None]
  - VASCULITIS [None]
